FAERS Safety Report 6081765-2 (Version None)
Quarter: 2009Q1

REPORT INFORMATION
  Report Type: 
  Country: None (occurrence: None)
  Receive Date: 20090218
  Receipt Date: 20090210
  Transmission Date: 20090719
  Serious: Yes (Other)
  Sender: FDA-Public Use
  Company Number: GB-TEVA-185429ISR

PATIENT
  Age: 63 Year
  Sex: Female

DRUGS (2)
  1. CIPROFLOXACIN [Suspect]
     Route: 048
  2. VORICONAZOLE [Suspect]
     Indication: ASPERGILLOSIS
     Route: 048

REACTIONS (2)
  - DRUG INTERACTION [None]
  - HALLUCINATION [None]
